FAERS Safety Report 9937305 (Version 1)
Quarter: 2014Q1

REPORT INFORMATION
  Report Type: Spontaneous
  Country: US (occurrence: US)
  Receive Date: 20140302
  Receipt Date: 20140302
  Transmission Date: 20141002
  Serious: No
  Sender: FDA-Public Use
  Company Number: US-TEVA-465043USA

PATIENT
  Sex: Male
  Weight: 77.18 kg

DRUGS (5)
  1. NUVIGIL [Suspect]
     Indication: CIRCADIAN RHYTHM SLEEP DISORDER
     Route: 048
     Dates: start: 201311
  2. NUVIGIL [Suspect]
     Indication: NARCOLEPSY
  3. ALPRAZOLAM [Concomitant]
     Indication: ANXIETY
  4. NEURONTIN [Concomitant]
     Indication: NEUROPATHY PERIPHERAL
  5. PROTONIX [Concomitant]
     Indication: GASTROINTESTINAL DISORDER

REACTIONS (1)
  - Anxiety [Not Recovered/Not Resolved]
